FAERS Safety Report 8852367 (Version 1)
Quarter: 2012Q4

REPORT INFORMATION
  Report Type: 
  Country: US (occurrence: US)
  Receive Date: 20121022
  Receipt Date: 20121022
  Transmission Date: 20130627
  Serious: Yes (Hospitalization, Other)
  Sender: FDA-Public Use
  Company Number: US-ASTRAZENECA-2012SE78196

PATIENT
  Age: 65 Year
  Sex: Female
  Weight: 77.1 kg

DRUGS (7)
  1. NEXIUM [Suspect]
     Indication: GASTROOESOPHAGEAL REFLUX DISEASE
     Route: 048
     Dates: end: 201210
  2. PRILOSEC [Suspect]
     Route: 048
  3. PRILOSEC [Suspect]
     Route: 048
     Dates: start: 201210
  4. PAXIL [Concomitant]
     Indication: DEPRESSION
     Route: 048
  5. PROBIOTICS [Concomitant]
     Indication: IRRITABLE BOWEL SYNDROME
     Route: 048
  6. LOVAZA OMEGA 3 [Concomitant]
     Route: 048
  7. ALPRAZOLAM [Concomitant]
     Indication: STRESS
     Dosage: 1 MG BID PRN
     Route: 048

REACTIONS (11)
  - Nephrolithiasis [Unknown]
  - Sepsis [Unknown]
  - Intervertebral disc protrusion [Unknown]
  - Attention deficit/hyperactivity disorder [Unknown]
  - Gout [Unknown]
  - Muscle spasms [Unknown]
  - Pollakiuria [Unknown]
  - Gastrooesophageal reflux disease [Unknown]
  - Abdominal discomfort [Unknown]
  - Drug ineffective [Unknown]
  - Intentional drug misuse [Unknown]
